FAERS Safety Report 11376538 (Version 1)
Quarter: 2015Q3

REPORT INFORMATION
  Report Type: Spontaneous
  Country: US (occurrence: US)
  Receive Date: 20150813
  Receipt Date: 20150813
  Transmission Date: 20151125
  Serious: No
  Sender: FDA-Public Use
  Company Number: US-ENDO PHARMACEUTICALS INC.-2015-002030

PATIENT
  Age: 59 Year
  Sex: Male
  Weight: 68.1 kg

DRUGS (1)
  1. XIAFLEX [Suspect]
     Active Substance: COLLAGENASE CLOSTRIDIUM HISTOLYTICUM
     Indication: PEYRONIE^S DISEASE
     Route: 065
     Dates: start: 201504

REACTIONS (2)
  - Blood blister [Unknown]
  - Penile swelling [Unknown]

NARRATIVE: CASE EVENT DATE: 201504
